FAERS Safety Report 5630313-7 (Version None)
Quarter: 2008Q1

REPORT INFORMATION
  Report Type: 
  Country: None (occurrence: None)
  Receive Date: 20080213
  Receipt Date: 20080130
  Transmission Date: 20080703
  Serious: Yes (Hospitalization)
  Sender: FDA-Public Use
  Company Number: 023277

PATIENT
  Age: 21 Year
  Sex: Female
  Weight: 67.7 kg

DRUGS (2)
  1. AYGESTIN [Suspect]
     Indication: HORMONE THERAPY
     Dosage: 5 MG, QD, ORAL
     Route: 048
     Dates: start: 20080102
  2. LUPRON [Suspect]
     Indication: ENDOMETRIOSIS
     Dosage: 11.25 MG/EVERY THREE MONTHS, INTRAMUSCULAR
     Route: 030
     Dates: start: 20080102

REACTIONS (5)
  - HEADACHE [None]
  - MUSCULAR WEAKNESS [None]
  - MYALGIA [None]
  - TONGUE ERUPTION [None]
  - VOMITING [None]
